FAERS Safety Report 23856609 (Version 1)
Quarter: 2024Q2

REPORT INFORMATION
  Report Type: Spontaneous
  Country: HU (occurrence: HU)
  Receive Date: 20240515
  Receipt Date: 20240515
  Transmission Date: 20240715
  Serious: Yes (Other)
  Sender: FDA-Public Use
  Company Number: HU-JNJFOC-20240519213

PATIENT
  Age: 74 Year
  Sex: Female

DRUGS (1)
  1. IMBRUVICA [Suspect]
     Active Substance: IBRUTINIB
     Indication: Chronic lymphocytic leukaemia refractory
     Route: 048
     Dates: start: 202005

REACTIONS (3)
  - Vulvar dysplasia [Unknown]
  - Hip arthroplasty [Unknown]
  - Splenomegaly [Unknown]

NARRATIVE: CASE EVENT DATE: 20200601
